FAERS Safety Report 5995129-0 (Version None)
Quarter: 2008Q4

REPORT INFORMATION
  Report Type: 
  Country: None (occurrence: None)
  Receive Date: 20081212
  Receipt Date: 20081204
  Transmission Date: 20090506
  Serious: Yes (Other)
  Sender: FDA-Public Use
  Company Number: PHBS2008US06629

PATIENT
  Age: 44 Year
  Sex: Male

DRUGS (11)
  1. BACLOFEN [Suspect]
     Indication: MUSCLE SPASTICITY
     Dosage: 100 UG CONTINUOUS DAILY
     Route: 037
  2. BACLOFEN [Suspect]
     Dosage: 215 UG, QD
     Route: 037
  3. BACLOFEN [Suspect]
     Dosage: 25 UG, ONCE4SDO
     Route: 037
  4. BACLOFEN [Suspect]
     Dosage: 230 UG, QD
     Route: 037
  5. BACLOFEN [Suspect]
     Dosage: 300 UG, QD
     Route: 037
  6. BACLOFEN [Suspect]
     Dosage: 40 UG, ONCE4SDO
     Route: 037
  7. BACLOFEN [Concomitant]
     Indication: MUSCLE SPASTICITY
     Dosage: 20 MG, ONCE OR TWICE A WEEK
     Route: 048
  8. BACLOFEN [Concomitant]
     Dosage: 20 MG, 7-8 TABS A DAY
     Route: 048
  9. BACLOFEN [Concomitant]
     Dosage: 20 MG, 5-6 TIMES A DAY
     Route: 048
  10. BACLOFEN [Concomitant]
     Dosage: 20 MG, 3 TO 4 TIMES A DAY
  11. BACLOFEN [Concomitant]
     Dosage: 100-120 MG A DAY

REACTIONS (7)
  - ABDOMINAL RIGIDITY [None]
  - CLONUS [None]
  - FATIGUE [None]
  - HYPERREFLEXIA [None]
  - HYPERTONIA [None]
  - MOBILITY DECREASED [None]
  - MUSCLE SPASTICITY [None]
